FAERS Safety Report 4335363-9 (Version None)
Quarter: 2004Q2

REPORT INFORMATION
  Report Type: 
  Country: None (occurrence: None)
  Receive Date: 20040406
  Receipt Date: 20040323
  Transmission Date: 20050107
  Serious: Yes (Death, Life-Threatening)
  Sender: FDA-Public Use
  Company Number: 163-20785-04010793

PATIENT
  Age: 3 Year
  Sex: Male

DRUGS (7)
  1. THALOMID [Suspect]
     Indication: MALIGNANT MELANOMA
     Dosage: 200 MG, DAILY, ORAL
     Route: 048
     Dates: start: 20040120, end: 20040120
  2. ALPHA-INTERFERON [Concomitant]
  3. INTERLEUKIN-2 (INTERLEUKIN-2) [Concomitant]
  4. CISPLATIN [Concomitant]
  5. DACARBAZINE [Concomitant]
  6. VINCRISTINE [Concomitant]
  7. TEMODAR [Concomitant]

REACTIONS (5)
  - CENTRAL NERVOUS SYSTEM NEOPLASM [None]
  - CONVULSION [None]
  - INTRACRANIAL PRESSURE INCREASED [None]
  - MALIGNANT MELANOMA [None]
  - MALIGNANT NEOPLASM PROGRESSION [None]
